FAERS Safety Report 6538721-7 (Version None)
Quarter: 2009Q4

REPORT INFORMATION
  Report Type: 
  Country: None (occurrence: None)
  Receive Date: 20091230
  Receipt Date: 20091230
  Transmission Date: 20100525
  Serious: Yes (Other)
  Sender: FDA-Public Use
  Company Number: None

PATIENT
  Sex: Male
  Weight: 81.6475 kg

DRUGS (1)
  1. TOPCARY 50MG / INHALER PROCTOR + GAMBLE /DIST.: [Suspect]
     Indication: RHINORRHOEA
     Dosage: ONCE } 2 HOURS NASAL SINGLE USE EVENT
     Route: 045

REACTIONS (1)
  - ANOSMIA [None]
